FAERS Safety Report 15329580 (Version 1)
Quarter: 2018Q3

REPORT INFORMATION
  Report Type: Spontaneous
  Country: US (occurrence: US)
  Receive Date: 20180829
  Receipt Date: 20180829
  Transmission Date: 20181010
  Serious: Yes (Other)
  Sender: FDA-Public Use
  Company Number: US-BAYER-2018-159541

PATIENT
  Age: 8 Year
  Sex: Male

DRUGS (2)
  1. KOGENATE FS [Suspect]
     Active Substance: ANTIHEMOPHILIC FACTOR, HUMAN RECOMBINANT
     Indication: FACTOR VIII DEFICIENCY
     Dosage: 1800 TIW. ROUTE: PORT
     Route: 040
     Dates: start: 20180626
  2. KOGENATE FS [Suspect]
     Active Substance: ANTIHEMOPHILIC FACTOR, HUMAN RECOMBINANT
     Indication: FACTOR VIII DEFICIENCY
     Dosage: 1800 ONCE TO CONTROL THE BLEEDING. ROUTE: PORT
     Route: 040
     Dates: start: 20180819, end: 20180819

REACTIONS (2)
  - Muscle haemorrhage [None]
  - Treatment noncompliance [None]

NARRATIVE: CASE EVENT DATE: 20180819
